FAERS Safety Report 21424367 (Version 2)
Quarter: 2022Q4

REPORT INFORMATION
  Report Type: Report from Study
  Country: US (occurrence: US)
  Receive Date: 20221007
  Receipt Date: 20221104
  Transmission Date: 20230112
  Serious: Yes (Death, Hospitalization, Other)
  Sender: FDA-Public Use
  Company Number: US-BIOGEN-2022BI01131715

PATIENT
  Sex: Female

DRUGS (20)
  1. ADUHELM [Suspect]
     Active Substance: ADUCANUMAB-AVWA
     Indication: Dementia Alzheimer^s type
     Route: 050
     Dates: end: 20220324
  2. ADUHELM [Suspect]
     Active Substance: ADUCANUMAB-AVWA
     Dosage: 3 INFUSIONS
     Route: 050
     Dates: start: 20220421
  3. ADUHELM [Suspect]
     Active Substance: ADUCANUMAB-AVWA
     Dosage: 2 INFUSIONS
     Route: 050
     Dates: start: 20220811
  4. ADUHELM [Suspect]
     Active Substance: ADUCANUMAB-AVWA
     Dosage: 1 INFUSION
     Route: 050
     Dates: start: 20220908
  5. MIDODRINE HYDROCHLORIDE [Concomitant]
     Active Substance: MIDODRINE HYDROCHLORIDE
     Indication: Product used for unknown indication
     Route: 050
  6. ESTRADIOL [Concomitant]
     Active Substance: ESTRADIOL
     Indication: Product used for unknown indication
     Route: 050
  7. NAMENDA XR [Concomitant]
     Active Substance: MEMANTINE HYDROCHLORIDE
     Indication: Product used for unknown indication
     Route: 050
  8. ARICEPT [Concomitant]
     Active Substance: DONEPEZIL HYDROCHLORIDE
     Indication: Product used for unknown indication
     Route: 050
  9. PROGESTERONE [Concomitant]
     Active Substance: PROGESTERONE
     Indication: Product used for unknown indication
     Route: 050
  10. SERTRALINE HYDROCHLORIDE [Concomitant]
     Active Substance: SERTRALINE HYDROCHLORIDE
     Indication: Product used for unknown indication
     Route: 050
  11. VITAMIN D3 [Concomitant]
     Active Substance: CHOLECALCIFEROL
     Indication: Product used for unknown indication
     Dosage: QD
     Route: 050
  12. MAGNESIUM THREONATE [Concomitant]
     Indication: Product used for unknown indication
     Route: 050
  13. VITAMIN C [Concomitant]
     Active Substance: ASCORBIC ACID
     Indication: Product used for unknown indication
     Route: 050
  14. ZINC [Concomitant]
     Active Substance: ZINC
     Indication: Product used for unknown indication
     Route: 050
  15. PURE 1 VITAMIN [Concomitant]
     Indication: Product used for unknown indication
     Route: 050
  16. LIQUID TURMERIC [Concomitant]
     Indication: Product used for unknown indication
     Route: 050
  17. COLACE [Concomitant]
     Active Substance: DOCUSATE SODIUM
     Indication: Product used for unknown indication
     Dosage: QOD
     Route: 050
  18. SENOKOT [Concomitant]
     Active Substance: SENNOSIDES
     Indication: Product used for unknown indication
  19. MIRALAX [Concomitant]
     Active Substance: POLYETHYLENE GLYCOL 3350
     Indication: Product used for unknown indication
     Dosage: EVERY DAY
     Route: 050
  20. ESTRADIOL [Concomitant]
     Active Substance: ESTRADIOL
     Indication: Product used for unknown indication
     Dosage: 0.175 PATCH DAILY
     Route: 050

REACTIONS (8)
  - Death [Fatal]
  - Subarachnoid haemorrhage [Recovered/Resolved]
  - Platelet dysfunction [Unknown]
  - Dysphagia [Unknown]
  - Fall [Recovered/Resolved]
  - Skin discolouration [Unknown]
  - Gait disturbance [Unknown]
  - Fungal infection [Unknown]

NARRATIVE: CASE EVENT DATE: 20220101
